FAERS Safety Report 7763607-X (Version None)
Quarter: 2011Q3

REPORT INFORMATION
  Report Type: 
  Country: None (occurrence: None)
  Receive Date: 20110921
  Receipt Date: 20110325
  Transmission Date: 20111222
  Serious: Yes (Hospitalization)
  Sender: FDA-Public Use
  Company Number: PHHY2011JP11999

PATIENT
  Sex: Male

DRUGS (10)
  1. TASIGNA [Suspect]
     Indication: CHRONIC MYELOID LEUKAEMIA
     Dosage: 200 MG, DAILY
     Route: 048
     Dates: start: 20090709
  2. ADALAT [Concomitant]
     Dosage: 40 MG, UNK
     Route: 048
  3. CANDESARTAN CILEXETIL [Concomitant]
     Dosage: 8 MG, UNK
     Route: 048
  4. ASPIRIN [Concomitant]
     Dosage: 100 MG, UNK
     Route: 048
  5. CANDESARTAN CILEXETIL [Concomitant]
     Dosage: 12 MG
     Route: 048
  6. METHYCOBAL [Concomitant]
     Dosage: 1.5 MG, UNK
     Route: 048
  7. WARFARIN SODIUM [Concomitant]
     Dosage: 1.5 MG, UNK
     Route: 048
  8. ADALAT [Concomitant]
     Dosage: 20 MG, UNK
     Route: 048
  9. WARFARIN SODIUM [Concomitant]
     Dosage: 1.25 MG, UNK
     Route: 048
  10. PROPAFENONE HYDROCHLORIDE [Concomitant]
     Dosage: 450 MG, UNK
     Route: 048

REACTIONS (3)
  - BLISTER [None]
  - PAIN [None]
  - HERPES ZOSTER [None]
